FAERS Safety Report 15632250 (Version 1)
Quarter: 2018Q4

REPORT INFORMATION
  Report Type: Spontaneous
  Country: US (occurrence: US)
  Receive Date: 20181113
  Receipt Date: 20181113
  Transmission Date: 20190205
  Serious: Yes (Life-Threatening, Hospitalization, Disabling, Other)
  Sender: FDA-Public Use
  Company Number: None

PATIENT
  Sex: Female
  Weight: 65.77 kg

DRUGS (2)
  1. MIRENA [Suspect]
     Active Substance: LEVONORGESTREL
  2. YAZ [Suspect]
     Active Substance: DROSPIRENONE\ETHINYL ESTRADIOL

REACTIONS (10)
  - Complication associated with device [None]
  - Abdominal pain [None]
  - Chest pain [None]
  - Muscle spasms [None]
  - Gallbladder necrosis [None]
  - Sepsis [None]
  - Uterine cyst [None]
  - Gait inability [None]
  - Device expulsion [None]
  - Menorrhagia [None]
